FAERS Safety Report 12803029 (Version 4)
Quarter: 2017Q1

REPORT INFORMATION
  Report Type: Report from Study
  Country: CO (occurrence: CO)
  Receive Date: 20161003
  Receipt Date: 20170215
  Transmission Date: 20170428
  Serious: Yes (Hospitalization)
  Sender: FDA-Public Use
  Company Number: PHHY2016CO089236

PATIENT
  Age: 55 Year
  Sex: Male
  Weight: 54 kg

DRUGS (2)
  1. REVOLADE [Suspect]
     Active Substance: ELTROMBOPAG
     Indication: IMMUNE THROMBOCYTOPENIC PURPURA
     Dosage: 25 MG, BID
     Route: 048
     Dates: start: 20160519, end: 20161005
  2. CYCLOSPORINE. [Concomitant]
     Active Substance: CYCLOSPORINE
     Indication: PRODUCT USED FOR UNKNOWN INDICATION
     Dosage: 150 MG, BID
     Route: 065

REACTIONS (8)
  - Skin discolouration [Unknown]
  - Haemoglobin decreased [Unknown]
  - Weight decreased [Unknown]
  - Platelet count decreased [Unknown]
  - Bone pain [Unknown]
  - Platelet count increased [Unknown]
  - Hypoaesthesia [Unknown]
  - Arthralgia [Unknown]

NARRATIVE: CASE EVENT DATE: 20160610
